FAERS Safety Report 8563928-7 (Version None)
Quarter: 2012Q3

REPORT INFORMATION
  Report Type: 
  Country: None (occurrence: None)
  Receive Date: 20120717
  Receipt Date: 20120705
  Transmission Date: 20120928
  Serious: Yes (Hospitalization)
  Sender: FDA-Public Use
  Company Number: 2012PROUSA01387

PATIENT
  Age: 76 Year
  Sex: Male
  Weight: 117.2 kg

DRUGS (12)
  1. VITAMIN TAB [Concomitant]
  2. LIDODERM [Concomitant]
  3. ASPIRIN [Concomitant]
  4. METOPROLOL TARTRATE [Concomitant]
  5. GLUCOSAMINE [Concomitant]
  6. VICODIN [Concomitant]
  7. LASIX [Concomitant]
  8. FISH OIL [Concomitant]
  9. FENTANYL CITRATE [Concomitant]
  10. PROVENGE [Suspect]
     Indication: PROSTATE CANCER METASTATIC
     Dosage: 250 ML, SINGLE, INTRAVENOUS
     Route: 042
     Dates: start: 20120503, end: 20120503
  11. OMEPRAZOLE [Concomitant]
  12. NASONEX [Concomitant]

REACTIONS (5)
  - CHILLS [None]
  - HYPOTENSION [None]
  - HYPOXIA [None]
  - INFUSION RELATED REACTION [None]
  - COUGH [None]
